FAERS Safety Report 8142403-8 (Version None)
Quarter: 2012Q1

REPORT INFORMATION
  Report Type: 
  Country: None (occurrence: None)
  Receive Date: 20120216
  Receipt Date: 20120213
  Transmission Date: 20120608
  Serious: Yes (Life-Threatening, Hospitalization)
  Sender: FDA-Public Use
  Company Number: DE-EISAI INC-E2020-10216-SPO-DE

PATIENT
  Age: 82 Year
  Sex: Female

DRUGS (9)
  1. ARICEPT [Suspect]
     Indication: DEMENTIA
     Route: 048
     Dates: start: 20111220, end: 20111220
  2. TRIAMTERENE AND HYDROCHLOROTHIAZIDE [Concomitant]
     Indication: HYPERTONIA
     Dosage: 50/25 MG UNKNOWN
     Route: 048
  3. RASILEZ [Concomitant]
     Indication: HYPERTONIA
     Dosage: 150 MG UNKNOWN
     Route: 048
  4. LIBRIUM [Concomitant]
     Indication: INSOMNIA
  5. AMLODIPINE [Concomitant]
     Indication: HYPERTONIA
     Dosage: 5 MG UNKNOWN
  6. IRBESARTAN [Concomitant]
     Indication: HYPERTONIA
     Dosage: 300 MG UNKNOWN
     Route: 048
  7. NOOTROP [Concomitant]
     Indication: PREMEDICATION
     Dosage: 1200 MG UNKNOWN
     Route: 048
  8. AMITRIPTYLINE HCL [Concomitant]
     Dates: end: 20111209
  9. METOPROLOLE [Concomitant]
     Indication: HYPERTONIA
     Dosage: 50 MG UNKNOWN
     Route: 048

REACTIONS (4)
  - SINUS BRADYCARDIA [None]
  - VOMITING [None]
  - CONVULSION [None]
  - LOSS OF CONSCIOUSNESS [None]
